FAERS Safety Report 13717815 (Version 2)
Quarter: 2017Q3

REPORT INFORMATION
  Report Type: Spontaneous
  Country: IT (occurrence: IT)
  Receive Date: 20170705
  Receipt Date: 20170721
  Transmission Date: 20171127
  Serious: Yes (Hospitalization, Other)
  Sender: FDA-Public Use
  Company Number: IT-CELGENEUS-ITA-20170603206

PATIENT
  Age: 79 Year
  Sex: Male
  Weight: 72 kg

DRUGS (4)
  1. KYPROLIS [Suspect]
     Active Substance: CARFILZOMIB
     Indication: PLASMA CELL MYELOMA
     Dosage: 50 MILLIGRAM
     Route: 041
     Dates: start: 20170518, end: 20170601
  2. REVLIMID [Suspect]
     Active Substance: LENALIDOMIDE
     Indication: PLASMA CELL MYELOMA
     Dosage: 15 MILLIGRAM
     Route: 048
     Dates: start: 20170518, end: 2017
  3. KYPROLIS [Suspect]
     Active Substance: CARFILZOMIB
     Indication: OFF LABEL USE
  4. DEXAMETHASONE. [Concomitant]
     Active Substance: DEXAMETHASONE
     Indication: PRODUCT USED FOR UNKNOWN INDICATION
     Route: 065

REACTIONS (7)
  - Dyspnoea [Recovered/Resolved]
  - Pyrexia [Not Recovered/Not Resolved]
  - Pneumonia [Not Recovered/Not Resolved]
  - Drug therapy [Unknown]
  - Pleural effusion [Recovering/Resolving]
  - Pleural effusion [Not Recovered/Not Resolved]
  - Bronchopneumopathy [Recovering/Resolving]

NARRATIVE: CASE EVENT DATE: 20170518
